FAERS Safety Report 6085144-3 (Version None)
Quarter: 2009Q1

REPORT INFORMATION
  Report Type: 
  Country: None (occurrence: None)
  Receive Date: 20090220
  Receipt Date: 20090205
  Transmission Date: 20090719
  Serious: Yes (Hospitalization, Other)
  Sender: FDA-Public Use
  Company Number: IE-ASTRAZENECA-2009GB00504

PATIENT
  Age: 76 Year
  Sex: Female

DRUGS (3)
  1. ZESTRIL [Suspect]
     Indication: HYPERTENSION
     Route: 048
     Dates: start: 20030530, end: 20081223
  2. ZESTRIL [Suspect]
     Indication: BLOOD CHOLESTEROL
     Route: 048
     Dates: start: 20030530, end: 20081223
  3. LESCOL [Concomitant]

REACTIONS (2)
  - IMMUNOGLOBULINS INCREASED [None]
  - LIVER FUNCTION TEST ABNORMAL [None]
